FAERS Safety Report 12075154 (Version 4)
Quarter: 2016Q3

REPORT INFORMATION
  Report Type: Spontaneous
  Country: US (occurrence: US)
  Receive Date: 20160212
  Receipt Date: 20160920
  Transmission Date: 20161109
  Serious: Yes (Hospitalization, Other)
  Sender: FDA-Public Use
  Company Number: US-BAUSCH-BL-2016-003339

PATIENT
  Age: 56 Year
  Sex: Male
  Weight: 93.07 kg

DRUGS (10)
  1. LACTULOSE. [Concomitant]
     Active Substance: LACTULOSE
     Indication: AMMONIA INCREASED
  2. VITAMIN D [Concomitant]
     Active Substance: CHOLECALCIFEROL
     Indication: VITAMIN D DEFICIENCY
  3. XIFAXAN [Suspect]
     Active Substance: RIFAXIMIN
     Indication: HEPATIC FAILURE
     Route: 048
     Dates: start: 2014
  4. LANTUS [Concomitant]
     Active Substance: INSULIN GLARGINE
     Indication: TYPE 2 DIABETES MELLITUS
  5. GABAPENTIN. [Concomitant]
     Active Substance: GABAPENTIN
     Indication: DIABETIC NEUROPATHY
  6. OMEPRAZOLE. [Concomitant]
     Active Substance: OMEPRAZOLE
     Indication: GASTROOESOPHAGEAL REFLUX DISEASE
  7. MAGNESIUM [Concomitant]
     Active Substance: MAGNESIUM
     Indication: SUPPLEMENTATION THERAPY
  8. XIFAXAN [Suspect]
     Active Substance: RIFAXIMIN
     Indication: RENAL FAILURE
  9. SPIRONOLACTONE. [Concomitant]
     Active Substance: SPIRONOLACTONE
     Indication: FLUID RETENTION
  10. LISINOPRIL. [Concomitant]
     Active Substance: LISINOPRIL
     Indication: HYPERTENSION

REACTIONS (4)
  - Weight increased [Recovered/Resolved]
  - Neuroendocrine tumour [Not Recovered/Not Resolved]
  - Perforated ulcer [Recovered/Resolved]
  - Weight fluctuation [Recovered/Resolved]

NARRATIVE: CASE EVENT DATE: 20150816
